FAERS Safety Report 11465435 (Version 3)
Quarter: 2015Q3

REPORT INFORMATION
  Report Type: Spontaneous
  Country: GB (occurrence: GB)
  Receive Date: 20150907
  Receipt Date: 20150928
  Transmission Date: 20151125
  Serious: Yes (Other)
  Sender: FDA-Public Use
  Company Number: GB-HOSPIRA-2993478

PATIENT
  Age: 40 Year
  Sex: Female
  Weight: 54 kg

DRUGS (4)
  1. CISPLATIN. [Suspect]
     Active Substance: CISPLATIN
     Indication: ADENOCARCINOMA GASTRIC
     Dosage: DATE OF LAST DOSE PRIOR TO SAE: 05/JUL/2012
     Route: 042
     Dates: start: 20120517
  2. AVASTIN [Suspect]
     Active Substance: BEVACIZUMAB
     Indication: ADENOCARCINOMA GASTRIC
     Dosage: DATE OF LAST DOSE PRIOR TO SAE: 05/JUL/2012
     Route: 042
     Dates: start: 20120517
  3. EPIRUBICIN HYDROCHLORIDE. [Suspect]
     Active Substance: EPIRUBICIN HYDROCHLORIDE
     Indication: ADENOCARCINOMA GASTRIC
     Dosage: DATE OF LAST DOSE PRIOR TO SAE: 05/JUL/2012
     Route: 042
     Dates: start: 20120517
  4. XELODA [Suspect]
     Active Substance: CAPECITABINE
     Indication: ADENOCARCINOMA GASTRIC
     Dosage: DATE OF LAST DOSE PRIOR TO SAE: 05/JUL/2012
     Route: 048
     Dates: start: 20120517

REACTIONS (3)
  - Oedema [Unknown]
  - Pulmonary embolism [Unknown]
  - Pain in extremity [Unknown]

NARRATIVE: CASE EVENT DATE: 20120729
